FAERS Safety Report 6309410-9 (Version None)
Quarter: 2009Q3

REPORT INFORMATION
  Report Type: 
  Country: None (occurrence: None)
  Receive Date: 20090811
  Receipt Date: 20090526
  Transmission Date: 20100115
  Serious: No
  Sender: FDA-Public Use
  Company Number: 1000006462

PATIENT
  Age: 68 Year
  Sex: Female

DRUGS (11)
  1. SAVELLA [Suspect]
     Indication: FIBROMYALGIA
     Dosage: 12.5 MG (12.5 MG,1 IN 1 D),ORAL;   25 MG (12.5 MG, 2 IN 1 D),ORAL;  50 MG (25 MG,2 IN 1 D),ORAL
     Route: 048
     Dates: start: 20090507, end: 20090507
  2. SAVELLA [Suspect]
     Indication: FIBROMYALGIA
     Dosage: 12.5 MG (12.5 MG,1 IN 1 D),ORAL;   25 MG (12.5 MG, 2 IN 1 D),ORAL;  50 MG (25 MG,2 IN 1 D),ORAL
     Route: 048
     Dates: start: 20090508, end: 20090509
  3. SAVELLA [Suspect]
     Indication: FIBROMYALGIA
     Dosage: 12.5 MG (12.5 MG,1 IN 1 D),ORAL;   25 MG (12.5 MG, 2 IN 1 D),ORAL;  50 MG (25 MG,2 IN 1 D),ORAL
     Route: 048
     Dates: start: 20090510, end: 20090513
  4. SAVELLA [Suspect]
     Indication: FIBROMYALGIA
     Dosage: 100 MG (50 MG, 2 IN 1 D),ORAL; 50 MG (25 MG,2 IN 1 D),ORAL
     Route: 048
     Dates: start: 20090514, end: 20090518
  5. SAVELLA [Suspect]
     Indication: FIBROMYALGIA
     Dosage: 100 MG (50 MG, 2 IN 1 D),ORAL; 50 MG (25 MG,2 IN 1 D),ORAL
     Route: 048
     Dates: start: 20090519
  6. PREVACID [Concomitant]
  7. MIRAPEX [Concomitant]
  8. GLIPIZIDE [Concomitant]
  9. METFORMIN HCL [Concomitant]
  10. SECTRAL [Concomitant]
  11. ZOCOR [Concomitant]

REACTIONS (4)
  - ABDOMINAL DISCOMFORT [None]
  - BLOOD GLUCOSE INCREASED [None]
  - DIARRHOEA [None]
  - HYPERHIDROSIS [None]
